FAERS Safety Report 6153622-4 (Version None)
Quarter: 2009Q2

REPORT INFORMATION
  Report Type: 
  Country: None (occurrence: None)
  Receive Date: 20090409
  Receipt Date: 20090330
  Transmission Date: 20091009
  Serious: Yes (Hospitalization, Other)
  Sender: FDA-Public Use
  Company Number: ADE2009-0524

PATIENT
  Age: 60 Year
  Sex: Female

DRUGS (10)
  1. CEFTRIAXONE [Suspect]
     Indication: BACTERIURIA
     Dosage: 2GM, DAILY, IV
     Route: 042
  2. CEFTRIAXONE [Suspect]
     Indication: PYURIA
     Dosage: 2GM, DAILY, IV
     Route: 042
  3. AMLODIPINE [Concomitant]
  4. FUROSEMIDE [Concomitant]
  5. RAMIPRIL [Concomitant]
  6. PRAVASTATIN [Concomitant]
  7. ASPIRIN [Concomitant]
  8. NITROGLYCERIN [Concomitant]
  9. AMITRIPTLINE HYDROCHLORIDE TAB [Concomitant]
  10. ESOMEPRAZOLE [Concomitant]

REACTIONS (2)
  - BLOOD CREATININE DECREASED [None]
  - TOXIC ENCEPHALOPATHY [None]
